FAERS Safety Report 9515386 (Version 2)
Quarter: 2013Q3

REPORT INFORMATION
  Report Type: Spontaneous
  Country: FR (occurrence: FR)
  Receive Date: 20130911
  Receipt Date: 20130911
  Transmission Date: 20140515
  Serious: Yes (Hospitalization)
  Sender: FDA-Public Use
  Company Number: PHHY2013FR072093

PATIENT
  Age: 63 Year
  Sex: Female

DRUGS (1)
  1. NEORAL [Suspect]

REACTIONS (1)
  - Pancytopenia [Recovered/Resolved with Sequelae]
